FAERS Safety Report 12680514 (Version 2)
Quarter: 2016Q3

REPORT INFORMATION
  Report Type: Report from Study
  Country: BR (occurrence: BR)
  Receive Date: 20160824
  Receipt Date: 20160906
  Transmission Date: 20161109
  Serious: Yes (Hospitalization, Other)
  Sender: FDA-Public Use
  Company Number: PHHY2016BR115043

PATIENT
  Age: 87 Year
  Sex: Male
  Weight: 58 kg

DRUGS (2)
  1. EXELON PATCH [Suspect]
     Active Substance: RIVASTIGMINE
     Indication: DEMENTIA
     Dosage: 4.6 MG, QD PATCH 5 (CM2)
     Route: 062
  2. PROLOPA [Concomitant]
     Active Substance: BENSERAZIDE\LEVODOPA
     Indication: PARKINSON^S DISEASE
     Dosage: UNK
     Route: 048

REACTIONS (5)
  - Malaise [Recovered/Resolved]
  - Pneumonia [Recovered/Resolved]
  - Weight decreased [Not Recovered/Not Resolved]
  - Pulmonary embolism [Recovering/Resolving]
  - Parkinson^s disease [Not Recovered/Not Resolved]

NARRATIVE: CASE EVENT DATE: 201606
